FAERS Safety Report 18044962 (Version 5)
Quarter: 2021Q3

REPORT INFORMATION
  Report Type: Spontaneous
  Country: US (occurrence: US)
  Receive Date: 20200720
  Receipt Date: 20210823
  Transmission Date: 20211014
  Serious: Yes (Other)
  Sender: FDA-Public Use
  Company Number: US-PURDUE-USA-2020-0155669

PATIENT
  Sex: Female

DRUGS (2)
  1. HYDROCODONE BITARTRATE AND ACETAMINOPHEN [Suspect]
     Active Substance: ACETAMINOPHEN\HYDROCODONE BITARTRATE
     Indication: JOINT INJURY
     Dosage: UNK
     Route: 048
  2. OXYCONTIN [Suspect]
     Active Substance: OXYCODONE HYDROCHLORIDE
     Indication: JOINT INJURY
     Dosage: UNK
     Route: 048

REACTIONS (10)
  - Amnesia [Not Recovered/Not Resolved]
  - Drug dependence [Unknown]
  - Developmental delay [Unknown]
  - Myocardial infarction [Unknown]
  - Dysgraphia [Unknown]
  - Cardiac disorder [Unknown]
  - Learning disability [Unknown]
  - Suicidal ideation [Unknown]
  - Intellectual disability [Unknown]
  - Cerebrovascular accident [Unknown]
